FAERS Safety Report 11051827 (Version 1)
Quarter: 2015Q2

REPORT INFORMATION
  Report Type: Spontaneous
  Country: US (occurrence: None)
  Receive Date: 20150420
  Receipt Date: 20150420
  Transmission Date: 20150821
  Serious: Yes (Death, Hospitalization)
  Sender: FDA-Public Use
  Company Number: None

PATIENT
  Age: 15 Year
  Sex: Female
  Weight: 81.8 kg

DRUGS (3)
  1. CYTARABINE. [Suspect]
     Active Substance: CYTARABINE
     Dates: end: 20070709
  2. MITOXANTRONE HYDROCHLORIDE. [Suspect]
     Active Substance: MITOXANTRONE HYDROCHLORIDE
     Dates: end: 20070711
  3. AMPHOTERICIN B. [Concomitant]
     Active Substance: AMPHOTERICIN B

REACTIONS (15)
  - Tachycardia [None]
  - Acute kidney injury [None]
  - Pulmonary oedema [None]
  - Hypotension [None]
  - Enterococcal infection [None]
  - Neutropenia [None]
  - Hypertriglyceridaemia [None]
  - Supraventricular tachycardia [None]
  - Acute respiratory failure [None]
  - Diaphragmatic disorder [None]
  - Ventricular tachycardia [None]
  - Cardiac arrest [None]
  - Sepsis [None]
  - Hyperbilirubinaemia [None]
  - Torsade de pointes [None]

NARRATIVE: CASE EVENT DATE: 20070823
